FAERS Safety Report 5901952-0 (Version None)
Quarter: 2008Q3

REPORT INFORMATION
  Report Type: 
  Country: None (occurrence: None)
  Receive Date: 20080929
  Receipt Date: 20080811
  Transmission Date: 20090109
  Serious: No
  Sender: FDA-Public Use
  Company Number: US-BRISTOL-MYERS SQUIBB COMPANY-14297618

PATIENT
  Sex: Female

DRUGS (4)
  1. BUSPAR [Suspect]
     Indication: PAIN
  2. AMBIEN [Suspect]
     Indication: PAIN
  3. OXYCONTIN [Suspect]
     Indication: PAIN
  4. LORTAB [Suspect]
     Indication: PAIN

REACTIONS (2)
  - HALLUCINATION, AUDITORY [None]
  - WITHDRAWAL SYNDROME [None]
